FAERS Safety Report 4608454-2 (Version None)
Quarter: 2005Q1

REPORT INFORMATION
  Report Type: 
  Country: None (occurrence: None)
  Receive Date: 20050311
  Receipt Date: 20050223
  Transmission Date: 20050727
  Serious: Yes (Other)
  Sender: FDA-Public Use
  Company Number: 2005-DE-00727GD

PATIENT

DRUGS (2)
  1. NEVIRAPINE [Suspect]
     Indication: HIV INFECTION
  2. NRTI (NR) [Suspect]
     Indication: HIV INFECTION

REACTIONS (4)
  - HYPERINSULINAEMIA [None]
  - HYPERLIPIDAEMIA [None]
  - LIPODYSTROPHY ACQUIRED [None]
  - REBOUND EFFECT [None]
